FAERS Safety Report 8395129-X (Version None)
Quarter: 2012Q2

REPORT INFORMATION
  Report Type: 
  Country: None (occurrence: None)
  Receive Date: 20120530
  Receipt Date: 20120517
  Transmission Date: 20120825
  Serious: Yes (Hospitalization)
  Sender: FDA-Public Use
  Company Number: 2012SP000701

PATIENT
  Age: 72 Year
  Sex: Male

DRUGS (9)
  1. GASTER /00706001/ [Concomitant]
     Indication: GASTRITIS
     Route: 048
  2. ALVESCO [Suspect]
     Indication: CHRONIC OBSTRUCTIVE PULMONARY DISEASE
     Route: 055
     Dates: start: 20081128
  3. SINGULAIR [Concomitant]
     Indication: ASTHMA
     Route: 048
  4. LENDORMIN [Concomitant]
     Indication: INSOMNIA
     Route: 048
  5. ALVESCO [Suspect]
     Indication: ASTHMA
     Route: 055
     Dates: start: 20081128
  6. TERSIGAN [Concomitant]
     Indication: ASTHMA
     Route: 055
  7. MUCOSOLVAN [Concomitant]
     Indication: ASTHMA
     Route: 048
  8. ASPENON [Concomitant]
     Indication: ARRHYTHMIA
     Route: 048
  9. THEO-DUR [Concomitant]
     Indication: ASTHMA
     Route: 048

REACTIONS (1)
  - BRONCHITIS BACTERIAL [None]
